FAERS Safety Report 6300329-6 (Version None)
Quarter: 2009Q3

REPORT INFORMATION
  Report Type: 
  Country: None (occurrence: None)
  Receive Date: 20090804
  Receipt Date: 20090722
  Transmission Date: 20100115
  Serious: Yes (Other)
  Sender: FDA-Public Use
  Company Number: 1-19212748

PATIENT
  Sex: Female

DRUGS (5)
  1. WARFARIN SODIUM [Suspect]
     Indication: ATRIAL FIBRILLATION
     Dosage: 7 MG DAILY, ORAL
     Route: 048
     Dates: start: 20070301
  2. VERAPAMIL [Concomitant]
  3. OMEPRAZOLE [Concomitant]
  4. OLMESARTAN MEDOXOMIL [Concomitant]
  5. SYMBICORT (BUDESONIDE AND FORMOTEROL FUMARATE DIHYDRATE) INHALER [Concomitant]

REACTIONS (6)
  - CONTUSION [None]
  - DRUG LEVEL BELOW THERAPEUTIC [None]
  - EPISTAXIS [None]
  - INTERNATIONAL NORMALISED RATIO DECREASED [None]
  - PARTIAL SEIZURES [None]
  - TREMOR [None]
